FAERS Safety Report 15867178 (Version 2)
Quarter: 2019Q1

REPORT INFORMATION
  Report Type: Report from Study
  Country: KR (occurrence: KR)
  Receive Date: 20190125
  Receipt Date: 20190126
  Transmission Date: 20190417
  Serious: No
  Sender: FDA-Public Use
  Company Number: KR-TAKEDA-2018TUS034110

PATIENT
  Age: 73 Year
  Sex: Female
  Weight: 79.2 kg

DRUGS (9)
  1. VORTIOXETINE. [Suspect]
     Active Substance: VORTIOXETINE
     Indication: MAJOR DEPRESSION
     Dosage: 5 MILLIGRAM, QD
     Route: 065
     Dates: start: 20170405, end: 20170418
  2. ALPRAM [Concomitant]
     Active Substance: ALPRAZOLAM
     Indication: MAJOR DEPRESSION
     Dosage: 0.125 MG, QD
     Route: 048
     Dates: start: 20170405
  3. CIMET                              /00397401/ [Concomitant]
     Indication: GASTROINTESTINAL DISORDER PROPHYLAXIS
     Dosage: 300 MG, QD
     Route: 048
     Dates: start: 20170502
  4. GASMOTIN [Concomitant]
     Active Substance: MOSAPRIDE CITRATE
     Indication: GASTROINTESTINAL DISORDER PROPHYLAXIS
     Dosage: 5 MG, QD
     Route: 048
     Dates: start: 20170405, end: 20170501
  5. PROMAC                             /01312301/ [Concomitant]
     Active Substance: POLAPREZINC
     Indication: GASTROINTESTINAL DISORDER PROPHYLAXIS
     Dosage: 75 MG, QD
     Route: 048
     Dates: start: 20170419
  6. VORTIOXETINE. [Suspect]
     Active Substance: VORTIOXETINE
     Dosage: 10 MILLIGRAM, QD
     Route: 065
     Dates: start: 20170419
  7. ATIVAN [Concomitant]
     Active Substance: LORAZEPAM
     Indication: MAJOR DEPRESSION
     Dosage: 0.5 MG, QD
     Route: 048
     Dates: start: 20170405
  8. VESICARE [Concomitant]
     Active Substance: SOLIFENACIN SUCCINATE
     Indication: POLLAKIURIA
     Dosage: 0.25 MG, QD
     Route: 048
     Dates: start: 20170419
  9. BETMIGA [Concomitant]
     Active Substance: MIRABEGRON
     Indication: POLLAKIURIA
     Dosage: 50 MG, QD
     Route: 048
     Dates: start: 20170419

REACTIONS (5)
  - Gastrooesophageal reflux disease [Recovering/Resolving]
  - Borderline glaucoma [Recovered/Resolved]
  - Dyspnoea exertional [Recovered/Resolved]
  - Reflux laryngitis [Recovered/Resolved]
  - Constipation [Recovered/Resolved]

NARRATIVE: CASE EVENT DATE: 20170412
